FAERS Safety Report 19089440 (Version 2)
Quarter: 2021Q2

REPORT INFORMATION
  Report Type: Spontaneous
  Country: NL (occurrence: NL)
  Receive Date: 20210403
  Receipt Date: 20210424
  Transmission Date: 20210717
  Serious: Yes (Other)
  Sender: FDA-Public Use
  Company Number: NL-ACCORD-221576

PATIENT
  Age: 64 Year
  Sex: Male
  Weight: 79 kg

DRUGS (4)
  1. IRBESARTAN. [Concomitant]
     Active Substance: IRBESARTAN
     Dosage: TABLET, 150 MG (MILLIGRAM)
  2. BETAHISTINE [Concomitant]
     Active Substance: BETAHISTINE
     Dosage: TABLET, 16 MG (MILLIGRAM)
  3. EZETIMIBE. [Suspect]
     Active Substance: EZETIMIBE
     Indication: HYPERCHOLESTEROLAEMIA
     Dosage: 1X PER DAY 1 TABLET?TABLET 10 MG
     Dates: start: 202011
  4. ASTRAZENECA COVID?19 VACCINE [Suspect]
     Active Substance: AZD-1222
     Indication: COVID-19 IMMUNISATION
     Dates: start: 20210304

REACTIONS (4)
  - Malaise [Recovered/Resolved]
  - Syncope [Recovered/Resolved]
  - Fatigue [Recovered/Resolved]
  - Chills [Recovered/Resolved]

NARRATIVE: CASE EVENT DATE: 20210305
